FAERS Safety Report 19630926 (Version 2)
Quarter: 2021Q4

REPORT INFORMATION
  Report Type: Report from Study
  Country: IT (occurrence: IT)
  Receive Date: 20210729
  Receipt Date: 20211112
  Transmission Date: 20220303
  Serious: Yes (Hospitalization)
  Sender: FDA-Public Use
  Company Number: IT-TAKEDA-IT201500891

PATIENT
  Age: 9 Year
  Sex: Male

DRUGS (2)
  1. IDURSULFASE [Suspect]
     Active Substance: IDURSULFASE
     Indication: Mucopolysaccharidosis II
     Dosage: 0.55 MILLIGRAM/KILOGRAM, 1/WEEK
     Route: 041
     Dates: start: 20061019
  2. IDURSULFASE [Suspect]
     Active Substance: IDURSULFASE
     Dosage: 0.44 MILLIGRAM/KILOGRAM, 1/WEEK
     Route: 042
     Dates: start: 20120503

REACTIONS (1)
  - Behaviour disorder [Recovered/Resolved]

NARRATIVE: CASE EVENT DATE: 20150110
